FAERS Safety Report 9674535 (Version 1)
Quarter: 2013Q4

REPORT INFORMATION
  Report Type: Spontaneous
  Country: US (occurrence: None)
  Receive Date: 20131105
  Receipt Date: 20131105
  Transmission Date: 20140711
  Serious: No
  Sender: FDA-Public Use
  Company Number: None

PATIENT
  Age: 18 Year
  Sex: Male
  Weight: 75.75 kg

DRUGS (2)
  1. DIVALPROEX ER [Suspect]
     Indication: EPILEPSY
     Route: 048
     Dates: start: 20090611, end: 20090914
  2. CARBAMAZEPINE [Concomitant]

REACTIONS (4)
  - Convulsion [None]
  - Condition aggravated [None]
  - Nausea [None]
  - Vomiting [None]
